FAERS Safety Report 17974405 (Version 1)
Quarter: 2020Q3

REPORT INFORMATION
  Report Type: Spontaneous
  Country: US (occurrence: US)
  Receive Date: 20200702
  Receipt Date: 20200702
  Transmission Date: 20201103
  Serious: No
  Sender: FDA-Public Use
  Company Number: None

PATIENT
  Age: 66 Year
  Sex: Female

DRUGS (5)
  1. METFORMIN ER 750MG AMNEAL PHARMACEUTICALS [Suspect]
     Active Substance: METFORMIN HYDROCHLORIDE
     Indication: TYPE 2 DIABETES MELLITUS
     Dosage: ?          QUANTITY:1 TABLET(S);OTHER FREQUENCY:W/ EVENING MEAL;?
     Route: 048
  2. FISH OIL [Concomitant]
     Active Substance: FISH OIL
  3. TRESIBA [Concomitant]
     Active Substance: INSULIN DEGLUDEC
  4. ASPIRIN. [Concomitant]
     Active Substance: ASPIRIN
  5. VITAMIN D3 [Concomitant]
     Active Substance: CHOLECALCIFEROL

REACTIONS (6)
  - Eye pruritus [None]
  - Foreign body sensation in eyes [None]
  - Abdominal discomfort [None]
  - Eye irritation [None]
  - Pain [None]
  - Discomfort [None]

NARRATIVE: CASE EVENT DATE: 20120701
